FAERS Safety Report 9423238 (Version 1)
Quarter: 2013Q3

REPORT INFORMATION
  Report Type: Spontaneous
  Country: GR (occurrence: GR)
  Receive Date: 20130726
  Receipt Date: 20130726
  Transmission Date: 20140515
  Serious: Yes (Hospitalization, Other)
  Sender: FDA-Public Use
  Company Number: GR-JNJFOC-20130714406

PATIENT
  Sex: 0

DRUGS (3)
  1. REMICADE [Suspect]
     Indication: COLITIS ULCERATIVE
     Route: 042
  2. REMICADE [Suspect]
     Indication: CROHN^S DISEASE
     Route: 042
  3. CORTICOSTEROIDS [Concomitant]
     Route: 065

REACTIONS (3)
  - Surgery [Unknown]
  - Infection [Recovered/Resolved]
  - Hypersensitivity [Unknown]
